FAERS Safety Report 7740352-8 (Version None)
Quarter: 2011Q3

REPORT INFORMATION
  Report Type: 
  Country: None (occurrence: None)
  Receive Date: 20110909
  Receipt Date: 20110906
  Transmission Date: 20111222
  Serious: No
  Sender: FDA-Public Use
  Company Number: US-TEVA-299752USA

PATIENT
  Age: 48 Year
  Sex: Female
  Weight: 61.744 kg

DRUGS (4)
  1. METOPROLOL TARTRATE [Concomitant]
     Indication: ARRHYTHMIA
  2. MIRTAZAPINE [Concomitant]
     Indication: DYSTHYMIC DISORDER
  3. HORMONE REPLACEMENT THERAPY [Concomitant]
     Indication: SLEEP DISORDER
  4. PLAN B ONE-STEP [Suspect]
     Indication: POST COITAL CONTRACEPTION
     Dosage: 1.5 MILLIGRAM;
     Route: 048
     Dates: start: 20110815, end: 20110815

REACTIONS (4)
  - HAEMORRHAGE [None]
  - PREGNANCY AFTER POST COITAL CONTRACEPTION [None]
  - PELVIC PAIN [None]
  - DRUG INEFFECTIVE [None]
